FAERS Safety Report 7814083-X (Version None)
Quarter: 2011Q4

REPORT INFORMATION
  Report Type: 
  Country: None (occurrence: None)
  Receive Date: 20111011
  Receipt Date: 20110926
  Transmission Date: 20120403
  Serious: Yes (Other)
  Sender: FDA-Public Use
  Company Number: 2011-01117

PATIENT
  Age: 57 Year
  Sex: Female
  Weight: 180 kg

DRUGS (2)
  1. CORTISONE ACETATE INJ [Concomitant]
  2. CEFUROXIME AXETIL TABLETS 500 MG (CEFUROXIME AXETIL) [Suspect]
     Indication: UVEITIS
     Dosage: 1000 MG (500 MG, 2 IN 1 D), PER ORAL
     Route: 048
     Dates: start: 20110923, end: 20110926

REACTIONS (4)
  - MUSCULAR WEAKNESS [None]
  - DIZZINESS [None]
  - TINNITUS [None]
  - NEUROPATHY PERIPHERAL [None]
